FAERS Safety Report 11532675 (Version 8)
Quarter: 2015Q4

REPORT INFORMATION
  Report Type: Report from Study
  Country: SE (occurrence: SE)
  Receive Date: 20150921
  Receipt Date: 20151214
  Transmission Date: 20160304
  Serious: Yes (Death, Life-Threatening, Hospitalization)
  Sender: FDA-Public Use
  Company Number: SE-CELGENE-SWE-2015092783

PATIENT
  Age: 76 Year
  Sex: Male
  Weight: 73 kg

DRUGS (25)
  1. CC-4047 [Suspect]
     Active Substance: POMALIDOMIDE
     Dosage: 10 MILLIGRAM
     Route: 048
     Dates: start: 20150925, end: 20151008
  2. DEXAMETHASONE. [Suspect]
     Active Substance: DEXAMETHASONE
     Indication: PLASMA CELL MYELOMA
     Route: 048
     Dates: start: 20150901
  3. OMEPRAZOLE. [Concomitant]
     Active Substance: OMEPRAZOLE
     Indication: PROPHYLAXIS AGAINST GASTROINTESTINAL ULCER
     Route: 048
     Dates: start: 201307, end: 20150912
  4. OXYNORM [Concomitant]
     Active Substance: OXYCODONE HYDROCHLORIDE
     Indication: BACK PAIN
     Route: 048
     Dates: start: 20150907
  5. OXYCONTIN [Concomitant]
     Active Substance: OXYCODONE HYDROCHLORIDE
     Route: 048
     Dates: start: 20150912, end: 20150921
  6. BETAPRED [Concomitant]
     Active Substance: BETAMETHASONE SODIUM PHOSPHATE
     Indication: NEUTROPENIC SEPSIS
     Route: 041
     Dates: start: 20150914, end: 20150915
  7. IMOVANE [Concomitant]
     Active Substance: ZOPICLONE
     Indication: INSOMNIA
     Dosage: 20 MILLIGRAM
     Route: 048
     Dates: start: 20150903
  8. OXYCONTIN [Concomitant]
     Active Substance: OXYCODONE HYDROCHLORIDE
     Dosage: 5-10 MILLIG
     Route: 048
     Dates: start: 20151001
  9. FRAGMIN [Concomitant]
     Active Substance: DALTEPARIN SODIUM
     Indication: THROMBOSIS PROPHYLAXIS
     Route: 048
     Dates: start: 20150901, end: 20150912
  10. CC-4047 [Suspect]
     Active Substance: POMALIDOMIDE
     Indication: PLASMA CELL MYELOMA
     Route: 048
     Dates: start: 20150901, end: 20150912
  11. VALACICLOVIR [Concomitant]
     Active Substance: VALACYCLOVIR HYDROCHLORIDE
     Indication: ANTIVIRAL PROPHYLAXIS
     Route: 048
     Dates: start: 20150923
  12. BORTEZOMIB [Suspect]
     Active Substance: BORTEZOMIB
     Dosage: 20 MILLIGRAM
     Route: 058
     Dates: start: 20150925, end: 20151005
  13. ACICLOVIR [Concomitant]
     Active Substance: ACYCLOVIR
     Indication: ANTIVIRAL PROPHYLAXIS
     Route: 048
     Dates: start: 20150901, end: 20150912
  14. RENVELA [Concomitant]
     Active Substance: SEVELAMER CARBONATE
     Indication: ACUTE KIDNEY INJURY
     Route: 048
     Dates: start: 20150916, end: 20150923
  15. ONDANSETRON [Concomitant]
     Active Substance: ONDANSETRON
     Indication: VOMITING
     Route: 065
     Dates: start: 20150923, end: 20150927
  16. DEXAMETHASONE. [Suspect]
     Active Substance: DEXAMETHASONE
     Route: 048
     Dates: start: 20150925, end: 20151006
  17. PAMIDRONAT [Concomitant]
     Indication: OSTEOPOROSIS PROPHYLAXIS
     Route: 041
     Dates: start: 201402
  18. BRICANYL [Concomitant]
     Active Substance: TERBUTALINE SULFATE
     Indication: ASTHMA
     Dosage: 5 MILLIEQUIVALENTS
     Route: 055
     Dates: start: 2011
  19. OXYCONTIN [Concomitant]
     Active Substance: OXYCODONE HYDROCHLORIDE
     Indication: BACK PAIN
     Dosage: 1.0714 MILLIGRAM
     Route: 048
     Dates: start: 20150909, end: 20150911
  20. MOVICOL [Concomitant]
     Active Substance: POLYETHYLENE GLYCOL 3350\POTASSIUM CHLORIDE\SODIUM BICARBONATE\SODIUM CHLORIDE
     Indication: CONSTIPATION
     Route: 048
     Dates: start: 20150909
  21. ALVEDON [Concomitant]
     Active Substance: ACETAMINOPHEN
     Indication: BACK PAIN
     Route: 048
     Dates: start: 201505, end: 20150908
  22. OXYCONTIN [Concomitant]
     Active Substance: OXYCODONE HYDROCHLORIDE
     Route: 048
     Dates: start: 20150922, end: 20150924
  23. BORTEZOMIB [Suspect]
     Active Substance: BORTEZOMIB
     Indication: PLASMA CELL MYELOMA
     Route: 058
     Dates: start: 20150901
  24. AMLODIPIN [Concomitant]
     Active Substance: AMLODIPINE BESYLATE
     Indication: HYPERTENSION
     Route: 048
     Dates: start: 201307, end: 20150912
  25. ALVEDON [Concomitant]
     Active Substance: ACETAMINOPHEN
     Dosage: 400 MILLIGRAM
     Route: 048
     Dates: start: 20150909

REACTIONS (4)
  - Neutropenic sepsis [Recovered/Resolved]
  - Infection [Fatal]
  - Acute kidney injury [Recovered/Resolved]
  - Respiratory failure [Recovered/Resolved]

NARRATIVE: CASE EVENT DATE: 20150911
